FAERS Safety Report 8815283 (Version 3)
Quarter: 2012Q4

REPORT INFORMATION
  Report Type: Report from Study
  Country: JP (occurrence: JP)
  Receive Date: 20120928
  Receipt Date: 20121101
  Transmission Date: 20130627
  Serious: Yes (Hospitalization)
  Sender: FDA-Public Use
  Company Number: JP-PFIZER INC-2012239173

PATIENT
  Age: 63 Year
  Sex: Male
  Weight: 58 kg

DRUGS (31)
  1. IRINOTECAN HCL [Suspect]
     Indication: PANCREATIC CARCINOMA
     Dosage: 301 mg/body, once in 2weeks
     Route: 041
     Dates: start: 20120703, end: 20120703
  2. IRINOTECAN HCL [Suspect]
     Dosage: 251 mg, once in 2weeks
     Route: 041
     Dates: start: 20120724, end: 20120821
  3. IRINOTECAN HCL [Suspect]
     Dosage: 200 mg, once in 2weeks
     Route: 041
     Dates: start: 20120911, end: 20120911
  4. ELPLAT [Suspect]
     Indication: PANCREATIC CARCINOMA
     Dosage: 142 mg/body, once in 2weeks
     Route: 041
     Dates: start: 20120703, end: 20120724
  5. ELPLAT [Suspect]
     Dosage: 109 mg, once in 2weeks
     Route: 041
     Dates: start: 20120821, end: 20120821
  6. ELPLAT [Suspect]
     Dosage: 84 mg, once in 2weeks
     Route: 041
     Dates: start: 20120911, end: 20120911
  7. LEVOFOLINATE [Suspect]
     Indication: PANCREATIC CARCINOMA
     Dosage: 334 mg/body, once in 2weeks
     Route: 041
     Dates: start: 20120703, end: 20120911
  8. 5-FU [Suspect]
     Indication: PANCREATIC CARCINOMA
     Dosage: 668 mg/body, once in 2weeks
     Route: 040
     Dates: start: 20120703, end: 20120703
  9. 5-FU [Suspect]
     Dosage: 4008 mg/body, once in 2weeks
     Route: 041
     Dates: start: 20120703, end: 20120912
  10. DEXART [Suspect]
     Indication: PROPHYLAXIS OF NAUSEA AND VOMITING
     Dosage: 9.9 mg, once in 2weeks
     Route: 041
     Dates: start: 20120703
  11. DECADRON [Suspect]
     Indication: PROPHYLAXIS OF NAUSEA AND VOMITING
     Dosage: 2 mg, 4x/day
     Route: 048
     Dates: start: 20120724
  12. ALOXI [Concomitant]
     Dosage: UNK
     Dates: start: 20120703
  13. ATROPINE SULFATE HYDRATE [Concomitant]
     Dosage: UNK
     Dates: start: 20120703
  14. FENTOS [Concomitant]
     Indication: PAIN
     Dosage: UNK
     Dates: start: 20120801
  15. OXINORM (OXYCODONE HYDROCHLORIDE) [Concomitant]
     Dosage: UNK
  16. LOXONIN [Concomitant]
     Dosage: UNK
  17. MAGMITT [Concomitant]
     Dosage: UNK
  18. FOIPAN [Concomitant]
  19. NEXIUM [Concomitant]
  20. PURSENNID [Concomitant]
     Dosage: UNK
  21. NOVAMIN [Concomitant]
     Dosage: UNK
     Dates: start: 20120709
  22. DOMPERIDONE [Concomitant]
     Dosage: UNK
     Dates: start: 20120709
  23. EMEND [Concomitant]
     Dosage: UNK
     Dates: start: 20120724
  24. MYSLEE [Concomitant]
     Indication: SLEEP LOSS
     Dosage: UNK
  25. MYSLEE [Concomitant]
     Indication: DIFFICULTY BREATHING
  26. CONSTAN [Concomitant]
     Indication: DEPRESSED MOOD
     Dosage: UNK
     Dates: start: 20120827
  27. AMOBAN [Concomitant]
     Indication: DIFFICULTY BREATHING
     Dosage: UNK
     Dates: start: 20120706
  28. AMOBAN [Concomitant]
     Indication: SLEEP LOSS
  29. TETRAMIDE [Concomitant]
     Indication: ADJUSTMENT DISORDER
     Dosage: UNK
     Dates: start: 20120918
  30. MORPHINE CHLORHYDRATE [Concomitant]
     Indication: CANCER PAIN
     Dosage: UNK
     Route: 058
     Dates: start: 20120919, end: 20120928
  31. SEROQUEL [Concomitant]
     Dosage: UNK

REACTIONS (1)
  - Depression [Recovering/Resolving]
